FAERS Safety Report 11137796 (Version 1)
Quarter: 2015Q2

REPORT INFORMATION
  Report Type: Spontaneous
  Country: US (occurrence: US)
  Receive Date: 20150526
  Receipt Date: 20150526
  Transmission Date: 20150821
  Serious: No
  Sender: FDA-Public Use
  Company Number: US-MALLINCKRODT-T201500834

PATIENT
  Age: 55 Year
  Sex: Male

DRUGS (1)
  1. H.P. ACTHAR [Suspect]
     Active Substance: CORTICOTROPIN
     Indication: NEPHROTIC SYNDROME
     Dosage: 40 U, BIWEEKLY
     Route: 065
     Dates: start: 20150113

REACTIONS (18)
  - Dry skin [Not Recovered/Not Resolved]
  - Blood pressure increased [Not Recovered/Not Resolved]
  - Contusion [Unknown]
  - Weight bearing difficulty [Unknown]
  - Sinus congestion [Unknown]
  - Fluid retention [Unknown]
  - Upper respiratory tract infection [Recovering/Resolving]
  - Haemoglobin decreased [Unknown]
  - Thirst [Unknown]
  - Cough [Unknown]
  - Productive cough [Unknown]
  - Heart rate increased [Unknown]
  - Fall [Unknown]
  - Epistaxis [Unknown]
  - Scratch [Unknown]
  - Nasopharyngitis [Unknown]
  - Sinusitis [Unknown]
  - Malaise [Unknown]

NARRATIVE: CASE EVENT DATE: 201501
